FAERS Safety Report 24571597 (Version 1)
Quarter: 2024Q4

REPORT INFORMATION
  Report Type: Spontaneous
  Country: GB (occurrence: GB)
  Receive Date: 20241101
  Receipt Date: 20241101
  Transmission Date: 20250115
  Serious: Yes (Other)
  Sender: AUROBINDO
  Company Number: GB-MHRA-MED-202410200053146510-ZVBGQ

PATIENT
  Age: 36 Year
  Sex: Female

DRUGS (1)
  1. ANASTROZOLE [Suspect]
     Active Substance: ANASTROZOLE
     Indication: Product used for unknown indication
     Dosage: 1 MILLIGRAM, ONCE A DAY(AT NIGHT)
     Route: 065

REACTIONS (3)
  - Hot flush [Not Recovered/Not Resolved]
  - Bone pain [Not Recovered/Not Resolved]
  - Insomnia [Not Recovered/Not Resolved]
